FAERS Safety Report 6735646-9 (Version None)
Quarter: 2010Q2

REPORT INFORMATION
  Report Type: 
  Country: None (occurrence: None)
  Receive Date: 20100521
  Receipt Date: 20100511
  Transmission Date: 20101027
  Serious: No
  Sender: FDA-Public Use
  Company Number: PHHY2010CA25049

PATIENT
  Sex: Female

DRUGS (1)
  1. ACLASTA [Suspect]
     Indication: OSTEOPOROSIS
     Dosage: 5 MG
     Route: 042
     Dates: start: 20090423

REACTIONS (5)
  - ARRHYTHMIA [None]
  - ARTHRALGIA [None]
  - FATIGUE [None]
  - HEADACHE [None]
  - PARAESTHESIA [None]
